FAERS Safety Report 24170248 (Version 1)
Quarter: 2024Q3

REPORT INFORMATION
  Report Type: Spontaneous
  Country: CA (occurrence: CA)
  Receive Date: 20240803
  Receipt Date: 20240803
  Transmission Date: 20241016
  Serious: Yes (Life-Threatening)
  Sender: TEVA
  Company Number: CA-TEVA-VS-3226839

PATIENT
  Age: 70 Year
  Weight: 67 kg

DRUGS (1)
  1. CARBOPLATIN [Suspect]
     Active Substance: CARBOPLATIN
     Indication: Chemotherapy
     Dosage: DOSAGE FORM: SOLUTION INTRAVENOUS
     Route: 065

REACTIONS (3)
  - Respiratory distress [Recovered/Resolved]
  - Unresponsive to stimuli [Recovered/Resolved]
  - Laryngeal oedema [Recovered/Resolved]
